FAERS Safety Report 18510813 (Version 1)
Quarter: 2020Q4

REPORT INFORMATION
  Report Type: Spontaneous
  Country: US (occurrence: US)
  Receive Date: 20201116
  Receipt Date: 20201116
  Transmission Date: 20210114
  Serious: Yes (Death)
  Sender: FDA-Public Use
  Company Number: None

PATIENT
  Age: 60 Year
  Sex: Male

DRUGS (2)
  1. ARANESP [Suspect]
     Active Substance: DARBEPOETIN ALFA
     Indication: AGRANULOCYTOSIS
     Dosage: ?          OTHER STRENGTH:200 UGM;OTHER DOSE:200 UGM;?
     Route: 058
     Dates: start: 20200812
  2. FULPHILA [Suspect]
     Active Substance: PEGFILGRASTIM-JMDB
     Route: 058
     Dates: start: 20200706

REACTIONS (1)
  - Death [None]
